FAERS Safety Report 15548569 (Version 2)
Quarter: 2019Q1

REPORT INFORMATION
  Report Type: Report from Study
  Country: BR (occurrence: BR)
  Receive Date: 20181025
  Receipt Date: 20190201
  Transmission Date: 20190417
  Serious: Yes (Death, Hospitalization, Other)
  Sender: FDA-Public Use
  Company Number: BR-UCBSA-2018046864

PATIENT
  Age: 52 Year
  Sex: Male
  Weight: 65 kg

DRUGS (2)
  1. LEVETIRACETAM. [Suspect]
     Active Substance: LEVETIRACETAM
     Indication: OFF LABEL USE
  2. LEVETIRACETAM. [Suspect]
     Active Substance: LEVETIRACETAM
     Indication: HAEMODIALYSIS
     Dosage: 250 MG ONE IN MORNING AND TWO TAB AT NIGHT, 2X/DAY (BID)
     Route: 048
     Dates: start: 201807, end: 201811

REACTIONS (7)
  - Fatigue [Recovered/Resolved]
  - Cardiac arrest [Fatal]
  - Off label use [Unknown]
  - Cerebrovascular accident [Unknown]
  - Cardio-respiratory arrest [Fatal]
  - Seizure [Recovered/Resolved]
  - Somnolence [Recovered/Resolved]

NARRATIVE: CASE EVENT DATE: 201807
